FAERS Safety Report 13371055 (Version 3)
Quarter: 2022Q2

REPORT INFORMATION
  Report Type: Spontaneous
  Country: US (occurrence: US)
  Receive Date: 20170324
  Receipt Date: 20220411
  Transmission Date: 20220721
  Serious: Yes (Other)
  Sender: FDA-Public Use
  Company Number: US-SAOL THERAPEUTICS-2017SAO00571

PATIENT
  Sex: Male
  Weight: 98.413 kg

DRUGS (5)
  1. BACLOFEN [Suspect]
     Active Substance: BACLOFEN
     Indication: Post laminectomy syndrome
     Route: 037
  2. BACLOFEN [Suspect]
     Active Substance: BACLOFEN
     Indication: Spinal pain
  3. FENTANYL [Suspect]
     Active Substance: FENTANYL
     Route: 037
  4. CLONIDINE [Suspect]
     Active Substance: CLONIDINE
     Route: 037
  5. BUPIVACAINE [Suspect]
     Active Substance: BUPIVACAINE
     Route: 037

REACTIONS (4)
  - Spinal operation [Unknown]
  - Neuralgia [Unknown]
  - Off label use [Unknown]
  - Pain [Unknown]

NARRATIVE: CASE EVENT DATE: 20150101
